FAERS Safety Report 13041335 (Version 1)
Quarter: 2016Q4

REPORT INFORMATION
  Report Type: Spontaneous
  Country: DE (occurrence: DE)
  Receive Date: 20161219
  Receipt Date: 20161219
  Transmission Date: 20170207
  Serious: Yes (Hospitalization)
  Sender: FDA-Public Use
  Company Number: DE-UNICHEM LABORATORIES LIMITED-UCM201612-000280

PATIENT
  Age: 3 Year
  Sex: Male

DRUGS (1)
  1. TOPIRAMATE. [Suspect]
     Active Substance: TOPIRAMATE

REACTIONS (2)
  - Bladder obstruction [Recovered/Resolved]
  - Nephrolithiasis [Recovered/Resolved]
